FAERS Safety Report 5838956-2 (Version None)
Quarter: 2008Q3

REPORT INFORMATION
  Report Type: 
  Country: None (occurrence: None)
  Receive Date: 20080808
  Receipt Date: 20080808
  Transmission Date: 20090109
  Serious: Yes (Hospitalization)
  Sender: FDA-Public Use
  Company Number: PHHO2000CA02504

PATIENT
  Sex: Male
  Weight: 82 kg

DRUGS (3)
  1. PLACEBO PLACEBO [Suspect]
     Dosage: PLACEBO
     Route: 048
     Dates: start: 19990406
  2. NEORAL [Concomitant]
     Route: 048
     Dates: start: 20000318
  3. SEPTRA [Concomitant]
     Route: 048
     Dates: start: 20000420

REACTIONS (1)
  - CYTOMEGALOVIRUS INFECTION [None]
